FAERS Safety Report 5011360-5 (Version None)
Quarter: 2006Q2

REPORT INFORMATION
  Report Type: 
  Country: None (occurrence: None)
  Receive Date: 20060404
  Receipt Date: 20060110
  Transmission Date: 20061013
  Serious: No
  Sender: FDA-Public Use
  Company Number: US200601001613

PATIENT
  Sex: Female

DRUGS (3)
  1. CYMBALTA [Suspect]
     Indication: PAIN
     Dosage: 60 MG; SEE IMAGE
  2. MOBIC [Concomitant]
  3. SEROQUEL [Concomitant]

REACTIONS (4)
  - FATIGUE [None]
  - MALAISE [None]
  - SOMNOLENCE [None]
  - THINKING ABNORMAL [None]
